FAERS Safety Report 6709705-0 (Version None)
Quarter: 2010Q2

REPORT INFORMATION
  Report Type: 
  Country: None (occurrence: None)
  Receive Date: 20100504
  Receipt Date: 20100423
  Transmission Date: 20101027
  Serious: Yes (Other)
  Sender: FDA-Public Use
  Company Number: NZ-JNJFOC-20100407296

PATIENT
  Age: 58 Year
  Sex: Male

DRUGS (3)
  1. PREZISTA [Suspect]
     Indication: HIV INFECTION
     Route: 048
  2. HIV MEDICATION [Concomitant]
     Indication: HIV INFECTION
  3. ANTIBIOTICS [Concomitant]

REACTIONS (2)
  - CONSTIPATION [None]
  - GASTROINTESTINAL OBSTRUCTION [None]
